FAERS Safety Report 8571061-3 (Version None)
Quarter: 2012Q3

REPORT INFORMATION
  Report Type: 
  Country: None (occurrence: None)
  Receive Date: 20120730
  Receipt Date: 20120730
  Transmission Date: 20120928
  Serious: Yes (Hospitalization)
  Sender: FDA-Public Use
  Company Number: None

PATIENT
  Age: 43 Year
  Sex: Female
  Weight: 121 kg

DRUGS (10)
  1. ABRAXANE [Suspect]
     Indication: BREAST CANCER
     Dosage: 100MG/M2 WEEKLY IV
     Route: 042
     Dates: start: 20120326, end: 20120511
  2. CARBOPLATIN [Suspect]
     Indication: BREAST CANCER
     Dosage: AUC 4.5 QWK IV
     Route: 042
     Dates: start: 20120326, end: 20120504
  3. DEPAKOTE [Concomitant]
  4. METFORMIN HYDROCHLORIDE [Concomitant]
  5. COMPAZINE [Concomitant]
  6. CRESTOR [Concomitant]
  7. DETROL [Concomitant]
  8. HYDROCHLOROTHIAZIDE [Concomitant]
  9. PROZAC [Concomitant]
  10. MOTRIN [Concomitant]

REACTIONS (10)
  - NAUSEA [None]
  - DEHYDRATION [None]
  - VOMITING [None]
  - DYSPNOEA [None]
  - NO THERAPEUTIC RESPONSE [None]
  - ANAEMIA [None]
  - DIARRHOEA [None]
  - HYPOPHAGIA [None]
  - FLUID INTAKE REDUCED [None]
  - HYPOKALAEMIA [None]
